FAERS Safety Report 7902885-0 (Version None)
Quarter: 2011Q4

REPORT INFORMATION
  Report Type: 
  Country: None (occurrence: None)
  Receive Date: 20111109
  Receipt Date: 20111103
  Transmission Date: 20120403
  Serious: Yes (Death, Life-Threatening, Other)
  Sender: FDA-Public Use
  Company Number: CZ-JNJFOC-20101208057

PATIENT
  Sex: Female
  Weight: 85 kg

DRUGS (20)
  1. GOLIMUMAB [Suspect]
     Route: 058
     Dates: start: 20101108
  2. MEDROL [Concomitant]
     Indication: RHEUMATOID ARTHRITIS
     Dates: start: 20091027
  3. AMLODIPINE BESYLATE [Concomitant]
     Dates: start: 20091001
  4. ALLOPURINOL [Suspect]
     Indication: PRODUCT USED FOR UNKNOWN INDICATION
     Dates: start: 20101001
  5. LOZAR [Concomitant]
     Dates: start: 20091001
  6. LOKREN [Concomitant]
     Dates: start: 20091001
  7. TENAXUM [Concomitant]
     Dates: start: 20101001
  8. SORBIFER [Concomitant]
     Dates: start: 20101001
  9. TRIAMCINOLONE [Concomitant]
  10. METHOTREXATE [Concomitant]
     Indication: RHEUMATOID ARTHRITIS
     Dates: start: 20091027
  11. ORTANOL [Concomitant]
     Indication: GASTRITIS
     Dates: start: 20090927
  12. ACIDUM FOLICUM [Concomitant]
     Indication: RHEUMATOID ARTHRITIS
     Dates: start: 20091027
  13. ATORVASTATIN [Concomitant]
     Indication: PRODUCT USED FOR UNKNOWN INDICATION
     Dates: start: 20091001
  14. SPIRONOLACTONE [Concomitant]
     Dates: start: 20101001
  15. DERMACYN [Concomitant]
  16. FUROSEMIDE [Concomitant]
     Dates: start: 20101001
  17. GOLIMUMAB [Suspect]
     Route: 058
     Dates: start: 20101011
  18. HYPOTYLIN [Concomitant]
     Dates: start: 20091001
  19. GOLIMUMAB [Suspect]
     Indication: RHEUMATOID ARTHRITIS
     Route: 058
     Dates: start: 20101206
  20. BLESSIN PLUS H [Concomitant]
     Dates: start: 20101001

REACTIONS (4)
  - RENAL FAILURE ACUTE [None]
  - SEPSIS [None]
  - CARDIOPULMONARY FAILURE [None]
  - DERMATITIS ALLERGIC [None]
